FAERS Safety Report 15365279 (Version 1)
Quarter: 2018Q3

REPORT INFORMATION
  Report Type: Spontaneous
  Country: CN (occurrence: CN)
  Receive Date: 20180910
  Receipt Date: 20180910
  Transmission Date: 20181010
  Serious: Yes (Other)
  Sender: FDA-Public Use
  Company Number: CN-CONCORDIA PHARMACEUTICALS INC.-E2B_00011269

PATIENT
  Age: 52 Year
  Sex: Male

DRUGS (3)
  1. PREDNISOLONE. [Suspect]
     Active Substance: PREDNISOLONE
     Indication: INTERVERTEBRAL DISC PROTRUSION
     Dosage: EPIDURAL INJECTION VIA SACRAL CANAL
     Route: 008
     Dates: start: 20160906
  2. NORMAL SALINE [Concomitant]
     Active Substance: SODIUM CHLORIDE
     Dosage: NORMAL SALINE
     Route: 008
     Dates: start: 20160906
  3. LIDOCAINE HYDROCHLORIDE 0.5% [Concomitant]
     Indication: INTERVERTEBRAL DISC PROTRUSION
     Route: 008
     Dates: start: 20160906

REACTIONS (2)
  - Myelitis [Recovering/Resolving]
  - Spinal cord infarction [Recovering/Resolving]

NARRATIVE: CASE EVENT DATE: 20160906
